FAERS Safety Report 7098490-1 (Version None)
Quarter: 2010Q4

REPORT INFORMATION
  Report Type: 
  Country: None (occurrence: None)
  Receive Date: 20101104
  Receipt Date: 20101022
  Transmission Date: 20110411
  Serious: Yes (Life-Threatening, Hospitalization, Other)
  Sender: FDA-Public Use
  Company Number: 2006EN000105

PATIENT
  Age: 13 Month
  Sex: Female

DRUGS (13)
  1. ADAGEN [Suspect]
     Indication: COMBINED IMMUNODEFICIENCY
     Dosage: QW;IM ; 225 IU;BIW;IM ; 375 IU;BIW;IM ; 60 IU/KG;QW;IM ; 20 IU;QW;IM
     Route: 030
     Dates: end: 20060510
  2. ADAGEN [Suspect]
     Indication: COMBINED IMMUNODEFICIENCY
     Dosage: QW;IM ; 225 IU;BIW;IM ; 375 IU;BIW;IM ; 60 IU/KG;QW;IM ; 20 IU;QW;IM
     Route: 030
     Dates: start: 20030618
  3. ADAGEN [Suspect]
     Indication: COMBINED IMMUNODEFICIENCY
     Dosage: QW;IM ; 225 IU;BIW;IM ; 375 IU;BIW;IM ; 60 IU/KG;QW;IM ; 20 IU;QW;IM
     Route: 030
     Dates: start: 20040505
  4. ADAGEN [Suspect]
     Indication: COMBINED IMMUNODEFICIENCY
     Dosage: QW;IM ; 225 IU;BIW;IM ; 375 IU;BIW;IM ; 60 IU/KG;QW;IM ; 20 IU;QW;IM
     Route: 030
     Dates: start: 20060122
  5. IMMU-G [Concomitant]
  6. ACICLOVIR [Concomitant]
  7. CO-TRIMOXAZOL ^GLAXO WELLCOME^ [Concomitant]
  8. ITRACONAZOLE [Concomitant]
  9. AMPICILLIN [Concomitant]
  10. VANCOMYCIN [Concomitant]
  11. CEFTAZIDIME [Concomitant]
  12. IMIPENEM [Concomitant]
  13. CORTICOSTEROIDS [Concomitant]

REACTIONS (10)
  - ANAEMIA HAEMOLYTIC AUTOIMMUNE [None]
  - DEVELOPMENTAL DELAY [None]
  - DISEASE RECURRENCE [None]
  - FAILURE TO THRIVE [None]
  - HISTIOCYTOSIS HAEMATOPHAGIC [None]
  - HYPOACUSIS [None]
  - NEUTROPENIA [None]
  - RENAL VEIN THROMBOSIS [None]
  - RESPIRATORY TRACT INFECTION [None]
  - URINARY TRACT INFECTION [None]
